FAERS Safety Report 5489682-3 (Version None)
Quarter: 2007Q4

REPORT INFORMATION
  Report Type: 
  Country: None (occurrence: None)
  Receive Date: 20071018
  Receipt Date: 20071010
  Transmission Date: 20080405
  Serious: Yes (Other)
  Sender: FDA-Public Use
  Company Number: US-ASTRAZENECA-2007UW23533

PATIENT
  Sex: Male

DRUGS (5)
  1. ELAVIL [Suspect]
  2. PAXIL [Suspect]
     Route: 048
  3. MEDROL [Suspect]
  4. RESTORIL [Suspect]
  5. XANAX [Suspect]

REACTIONS (2)
  - MENTAL DISORDER [None]
  - PHYSICAL ASSAULT [None]
